FAERS Safety Report 24801908 (Version 4)
Quarter: 2025Q1

REPORT INFORMATION
  Report Type: Spontaneous
  Country: MX (occurrence: MX)
  Receive Date: 20250102
  Receipt Date: 20250211
  Transmission Date: 20250409
  Serious: Yes (Hospitalization)
  Sender: JOHNSON AND JOHNSON
  Company Number: MX-BAYER-2025A000410

PATIENT
  Sex: Female
  Weight: 100 kg

DRUGS (5)
  1. XARELTO [Suspect]
     Active Substance: RIVAROXABAN
     Indication: Product used for unknown indication
     Dosage: 20 MG, QD
     Route: 048
  2. XARELTO [Suspect]
     Active Substance: RIVAROXABAN
     Dates: start: 202412
  3. METFORMIN HYDROCHLORIDE [Concomitant]
     Active Substance: METFORMIN HYDROCHLORIDE
     Indication: Product used for unknown indication
     Dosage: 1 DF, QD
  4. BIOTECAN [Concomitant]
     Indication: Product used for unknown indication
     Dosage: 1 DF, QD
  5. BEZAFIBRATE [Concomitant]
     Active Substance: BEZAFIBRATE
     Indication: Product used for unknown indication
     Dosage: 1 DF, QD

REACTIONS (6)
  - Gastric haemorrhage [Unknown]
  - Oesophageal haemorrhage [Unknown]
  - Haematemesis [Unknown]
  - Cardiac disorder [Unknown]
  - Gait disturbance [Unknown]
  - Incorrect dose administered [Unknown]
